FAERS Safety Report 17556804 (Version 2)
Quarter: 2020Q2

REPORT INFORMATION
  Report Type: Spontaneous
  Country: JP (occurrence: JP)
  Receive Date: 20200318
  Receipt Date: 20200619
  Transmission Date: 20200713
  Serious: Yes (Hospitalization, Other)
  Sender: FDA-Public Use
  Company Number: JP-KYOWAKIRIN-2019AKK016998

PATIENT

DRUGS (61)
  1. SAMTIREL [Concomitant]
     Active Substance: ATOVAQUONE
     Indication: ANTIFUNGAL PROPHYLAXIS
     Dosage: 1500 MG, QD
     Route: 048
     Dates: start: 20190425
  2. HACHIMIJIOGAN [Concomitant]
     Active Substance: HERBALS
     Indication: NOCTURIA
     Dosage: 2.5 G, TID
     Route: 048
     Dates: start: 20190805
  3. SEISHOKU [Concomitant]
     Active Substance: SODIUM CHLORIDE
     Dosage: 220 ML
     Route: 065
     Dates: start: 20190430, end: 20190508
  4. ISOTONIC SODIUM CHLORIDE SOLUTION [Concomitant]
     Active Substance: SODIUM CHLORIDE
     Dosage: 250 ML
     Route: 041
     Dates: start: 20190423, end: 20190423
  5. ISOTONIC SODIUM CHLORIDE SOLUTION [Concomitant]
     Active Substance: SODIUM CHLORIDE
     Dosage: 250 ML, 1X/2 WEEKS
     Route: 041
     Dates: start: 20190513, end: 20190902
  6. ISOTONIC SODIUM CHLORIDE SOLUTION [Concomitant]
     Active Substance: SODIUM CHLORIDE
     Dosage: 500 ML
     Route: 041
     Dates: start: 20190919, end: 20190920
  7. FILGRASTIM [Concomitant]
     Active Substance: FILGRASTIM
     Dosage: 75 UG
     Route: 058
     Dates: start: 20190419, end: 20190421
  8. CALONAL [Concomitant]
     Active Substance: ACETAMINOPHEN
     Dosage: UNK
     Route: 065
  9. EMEND [Concomitant]
     Active Substance: APREPITANT
     Indication: PROPHYLAXIS OF NAUSEA AND VOMITING
     Dosage: UNK UNK, QD
     Route: 048
     Dates: start: 20190409
  10. XYZAL [Concomitant]
     Active Substance: LEVOCETIRIZINE DIHYDROCHLORIDE
     Indication: RASH
     Dosage: 5 MG, QD
     Route: 048
     Dates: start: 20190610
  11. URSO [Concomitant]
     Active Substance: URSODIOL
     Indication: HEPATIC FUNCTION ABNORMAL
     Dosage: 100 MG, TID
     Route: 048
     Dates: start: 20190610
  12. THERARUBICIN [PIRARUBICIN HYDROCHLORIDE] [Concomitant]
     Dosage: 55 MG
     Route: 041
     Dates: start: 20190409, end: 20190409
  13. SEISHOKU [Concomitant]
     Active Substance: SODIUM CHLORIDE
     Dosage: 100 ML
     Route: 065
     Dates: start: 20190409, end: 20190409
  14. ISOTONIC SODIUM CHLORIDE SOLUTION [Concomitant]
     Active Substance: SODIUM CHLORIDE
     Dosage: 500 ML
     Route: 041
     Dates: start: 20190409, end: 20190409
  15. GLUCOSE [Concomitant]
     Active Substance: DEXTROSE
     Dosage: 250 ML
     Route: 065
     Dates: start: 20190423, end: 20190424
  16. KENKETU GLOVENIN-I [Concomitant]
     Active Substance: HUMAN IMMUNOGLOBULIN G
     Dosage: 5 G
     Route: 041
     Dates: start: 20190430, end: 20190502
  17. SOLU-MEDROL [Concomitant]
     Active Substance: METHYLPREDNISOLONE SODIUM SUCCINATE
     Dosage: 40 MG, 1X/2 WEEKS
     Route: 041
     Dates: start: 20190513, end: 20190902
  18. SOLACET F [Concomitant]
     Active Substance: CALCIUM CHLORIDE\POTASSIUM CHLORIDE\SODIUM ACETATE\SODIUM CHLORIDE
     Dosage: 500 ML
     Route: 041
     Dates: start: 20190408, end: 20190408
  19. SOLITA-T3 [Concomitant]
     Active Substance: POTASSIUM CHLORIDE\SODIUM CHLORIDE\SODIUM LACTATE
     Dosage: 500 ML, 1X/WEEK
     Route: 041
     Dates: start: 20190409, end: 20190423
  20. GRANISETRON [Concomitant]
     Active Substance: GRANISETRON
     Dosage: 3 MG, 1X/WEEK
     Route: 041
     Dates: start: 20190409, end: 20190423
  21. GRANISETRON [Concomitant]
     Active Substance: GRANISETRON
     Dosage: 3 MG, 1X/2 WEEKS
     Route: 041
     Dates: start: 20190513, end: 20190902
  22. SEISHOKU [Concomitant]
     Active Substance: SODIUM CHLORIDE
     Dosage: 10 ML
     Route: 065
     Dates: start: 20190417, end: 20190417
  23. ONCOVIN [Concomitant]
     Active Substance: VINCRISTINE SULFATE
     Dosage: 1.4 MG
     Route: 041
     Dates: start: 20190409, end: 20190409
  24. ISOTONIC SODIUM CHLORIDE SOLUTION [Concomitant]
     Active Substance: SODIUM CHLORIDE
     Dosage: 500 ML
     Route: 041
     Dates: start: 20190916, end: 20190917
  25. MINOPHAGEN C [CYSTEINE;GLYCINE;GLYCYRRHIZIC ACID] [Concomitant]
     Dosage: 40 ML
     Route: 065
     Dates: start: 20190918, end: 20190920
  26. PREDNISOLONE. [Suspect]
     Active Substance: PREDNISOLONE
     Dosage: 20 MG
     Route: 048
     Dates: start: 20190921, end: 20191007
  27. FEBURIC [Concomitant]
     Active Substance: FEBUXOSTAT
     Indication: HYPERURICAEMIA
     Dosage: 20 MG, QD
     Route: 048
     Dates: start: 20190409
  28. SOLITA-T3 [Concomitant]
     Active Substance: POTASSIUM CHLORIDE\SODIUM CHLORIDE\SODIUM LACTATE
     Dosage: 500 ML, 1X/2 WEEKS
     Route: 041
     Dates: start: 20190513, end: 20190902
  29. FILGRASTIM [Concomitant]
     Active Substance: FILGRASTIM
     Dosage: 75 UG
     Route: 058
     Dates: start: 20190426, end: 20190429
  30. MAXIPIME [Concomitant]
     Active Substance: CEFEPIME HYDROCHLORIDE
     Dosage: 4 G
     Route: 041
     Dates: start: 20190430, end: 20190508
  31. PREDNISOLONE. [Suspect]
     Active Substance: PREDNISOLONE
     Indication: ADULT T-CELL LYMPHOMA/LEUKAEMIA
     Dosage: 15 MG
     Route: 048
  32. LANSOPRAZOLE. [Concomitant]
     Active Substance: LANSOPRAZOLE
     Indication: GASTROOESOPHAGEAL REFLUX DISEASE
     Dosage: 15 MG, QD
     Route: 048
     Dates: start: 20190409
  33. DEXCHLORPHENIRAMINE MALEATE. [Concomitant]
     Active Substance: DEXCHLORPHENIRAMINE MALEATE
     Dosage: UNK
     Route: 065
  34. HEPAFLUSH [Concomitant]
     Active Substance: HEPARIN SODIUM
     Dosage: 1 DF
     Route: 065
     Dates: start: 20190408, end: 20190410
  35. SOLITA-T3 [Concomitant]
     Active Substance: POTASSIUM CHLORIDE\SODIUM CHLORIDE\SODIUM LACTATE
     Dosage: 500 ML
     Route: 041
     Dates: start: 20190424, end: 20190424
  36. SEISHOKU [Concomitant]
     Active Substance: SODIUM CHLORIDE
     Dosage: 10 ML
     Route: 065
     Dates: start: 20190424, end: 20190426
  37. SEISHOKU [Concomitant]
     Active Substance: SODIUM CHLORIDE
     Dosage: 10 ML
     Route: 065
     Dates: start: 20190916, end: 20190920
  38. FILGRASTIM [Concomitant]
     Active Substance: FILGRASTIM
     Dosage: 150 UG
     Route: 058
     Dates: start: 20190430, end: 20190501
  39. ETOPOSIDE. [Concomitant]
     Active Substance: ETOPOSIDE
     Dosage: 100 MG
     Route: 041
     Dates: start: 20190423, end: 20190424
  40. POTELIGEO [Suspect]
     Active Substance: MOGAMULIZUMAB-KPKC
     Indication: ADULT T-CELL LYMPHOMA/LEUKAEMIA
     Dosage: 50 MG, 1X/2 WEEKS
     Route: 041
     Dates: start: 20190513, end: 20190902
  41. PREDNISOLONE. [Suspect]
     Active Substance: PREDNISOLONE
     Dosage: 5 MG
     Route: 048
  42. GLACTIV [Concomitant]
     Active Substance: SITAGLIPTIN
     Indication: STEROID DIABETES
     Dosage: 50 MG, QD
     Route: 048
     Dates: start: 20190902
  43. SEISHOKU [Concomitant]
     Active Substance: SODIUM CHLORIDE
     Dosage: 60 ML
     Route: 065
     Dates: start: 20190423, end: 20190423
  44. SEISHOKU [Concomitant]
     Active Substance: SODIUM CHLORIDE
     Dosage: 110 ML
     Route: 065
     Dates: start: 20190429, end: 20190429
  45. FILDESIN [Concomitant]
     Active Substance: VINDESINE SULFATE
     Dosage: 3 MG
     Route: 041
     Dates: start: 20190423, end: 20190423
  46. CARBOPLATIN. [Concomitant]
     Active Substance: CARBOPLATIN
     Dosage: 350 MG
     Route: 041
     Dates: start: 20190423, end: 20190423
  47. MAXIPIME [Concomitant]
     Active Substance: CEFEPIME HYDROCHLORIDE
     Dosage: 2 G
     Route: 041
     Dates: start: 20190429, end: 20190429
  48. PREDNISOLONE. [Suspect]
     Active Substance: PREDNISOLONE
     Indication: RASH
     Dosage: 10 MG, BID
     Route: 048
     Dates: start: 20180709
  49. PREDNISOLONE. [Suspect]
     Active Substance: PREDNISOLONE
     Dosage: 60 MG, QD, DURING LSG15 THERAPY
     Route: 048
     Dates: start: 20190409
  50. PREDNISOLONE. [Suspect]
     Active Substance: PREDNISOLONE
     Dosage: 10 MG
     Route: 048
     Dates: start: 20191008
  51. SOLITA-T3 [Concomitant]
     Active Substance: POTASSIUM CHLORIDE\SODIUM CHLORIDE\SODIUM LACTATE
     Dosage: 500 ML
     Route: 041
     Dates: start: 20190505, end: 20190508
  52. SEISHOKU [Concomitant]
     Active Substance: SODIUM CHLORIDE
     Dosage: 160 ML
     Route: 065
     Dates: start: 20190416, end: 20190416
  53. BFLUID [Concomitant]
     Active Substance: AMINO ACIDS\DEXTROSE\ELECTROLYTES NOS\VITAMINS
     Dosage: 1000 ML
     Route: 041
     Dates: start: 20190430, end: 20190504
  54. PREDNISOLONE. [Suspect]
     Active Substance: PREDNISOLONE
     Dosage: 10 MG
     Route: 048
     Dates: start: 20190916, end: 20190920
  55. XYZAL [Concomitant]
     Active Substance: LEVOCETIRIZINE DIHYDROCHLORIDE
     Indication: PRURITUS
  56. GRANISETRON [Concomitant]
     Active Substance: GRANISETRON
     Dosage: 3 MG
     Route: 041
     Dates: start: 20190424, end: 20190424
  57. THERARUBICIN [PIRARUBICIN HYDROCHLORIDE] [Concomitant]
     Dosage: 40 MG
     Route: 041
     Dates: start: 20190416, end: 20190416
  58. ENDOXAN [CYCLOPHOSPHAMIDE MONOHYDRATE] [Concomitant]
     Active Substance: CYCLOPHOSPHAMIDE
     Dosage: 350 MG
     Route: 041
     Dates: start: 20190409, end: 20190409
  59. ISOTONIC SODIUM CHLORIDE SOLUTION [Concomitant]
     Active Substance: SODIUM CHLORIDE
     Dosage: 1000 ML
     Route: 041
     Dates: start: 20190918, end: 20190918
  60. CYMERIN [Concomitant]
     Active Substance: RANIMUSTINE
     Dosage: 85 MG
     Route: 041
     Dates: start: 20190416, end: 20190416
  61. ACELIO [Concomitant]
     Active Substance: ACETAMINOPHEN
     Dosage: 1000 MG
     Route: 041
     Dates: start: 20190430, end: 20190430

REACTIONS (7)
  - Erythema [Recovered/Resolved]
  - Diabetes mellitus [Recovering/Resolving]
  - Hyperglycaemia [Recovering/Resolving]
  - Nocturia [Recovering/Resolving]
  - Hepatic function abnormal [Recovering/Resolving]
  - Pruritus [Recovered/Resolved]
  - Rash [Recovering/Resolving]

NARRATIVE: CASE EVENT DATE: 20190608
